FAERS Safety Report 16320744 (Version 1)
Quarter: 2019Q2

REPORT INFORMATION
  Report Type: Spontaneous
  Country: US (occurrence: US)
  Receive Date: 20190516
  Receipt Date: 20190516
  Transmission Date: 20190711
  Serious: No
  Sender: FDA-Public Use
  Company Number: US-BAYER-2019-096697

PATIENT

DRUGS (28)
  1. DIPHENHYDRAMINE HYDROCHLORIDE. [Concomitant]
     Active Substance: DIPHENHYDRAMINE HYDROCHLORIDE
  2. DONEPEZIL. [Concomitant]
     Active Substance: DONEPEZIL
  3. ESTRADIOL. [Concomitant]
     Active Substance: ESTRADIOL
  4. S KIT [Concomitant]
  5. DEXILANT [Concomitant]
     Active Substance: DEXLANSOPRAZOLE
  6. PREGABALIN. [Concomitant]
     Active Substance: PREGABALIN
  7. ASPIRIN [ACETYLSALICYLIC ACID] [Concomitant]
     Active Substance: ASPIRIN
  8. ATORVASTATINE [ATORVASTATIN] [Concomitant]
     Active Substance: ATORVASTATIN
  9. MAGNESIUM OXIDE. [Concomitant]
     Active Substance: MAGNESIUM OXIDE
  10. POTASSIUM CHLORIDE. [Concomitant]
     Active Substance: POTASSIUM CHLORIDE
  11. LYRICA [Concomitant]
     Active Substance: PREGABALIN
  12. METHOCARBAMOL. [Concomitant]
     Active Substance: METHOCARBAMOL
  13. PROAIR HFA [Concomitant]
     Active Substance: ALBUTEROL SULFATE
  14. SPIRONOLACTONE. [Concomitant]
     Active Substance: SPIRONOLACTONE
  15. CARTIA XT [Concomitant]
     Active Substance: DILTIAZEM HYDROCHLORIDE
  16. CLONAZEPAM. [Concomitant]
     Active Substance: CLONAZEPAM
  17. FLUTICASONE PROPIONATE. [Concomitant]
     Active Substance: FLUTICASONE PROPIONATE
  18. IBUPROFEN. [Concomitant]
     Active Substance: IBUPROFEN
  19. TRAMADOL. [Concomitant]
     Active Substance: TRAMADOL
  20. METFORMIN [Concomitant]
     Active Substance: METFORMIN HYDROCHLORIDE
  21. MULTIVITAMINUM [Concomitant]
  22. NAMENDA [Concomitant]
     Active Substance: MEMANTINE HYDROCHLORIDE
  23. VENLAFAXINE [Concomitant]
     Active Substance: VENLAFAXINE HYDROCHLORIDE
  24. COQ (UBIDECARENONE) [Suspect]
     Active Substance: UBIDECARENONE
  25. CLARITIN-D 12 HOUR [Suspect]
     Active Substance: LORATADINE\PSEUDOEPHEDRINE SULFATE
     Dosage: UNK
  26. INSULIN [Concomitant]
     Active Substance: INSULIN NOS
  27. PROMETHAZINE [Concomitant]
     Active Substance: PROMETHAZINE\PROMETHAZINE HYDROCHLORIDE
  28. ZYRTEC [LEVOCABASTINE HYDROCHLORIDE] [Concomitant]

REACTIONS (3)
  - Nightmare [Unknown]
  - Multiple allergies [None]
  - Sleep disorder [Unknown]
